FAERS Safety Report 23078281 (Version 1)
Quarter: 2023Q4

REPORT INFORMATION
  Report Type: Spontaneous
  Country: CA (occurrence: CA)
  Receive Date: 20231018
  Receipt Date: 20231018
  Transmission Date: 20240109
  Serious: Yes (Other)
  Sender: FDA-Public Use
  Company Number: CA-002147023-NVSC2023CA222884

PATIENT
  Age: 30 Year
  Sex: Male

DRUGS (1)
  1. KESIMPTA [Suspect]
     Active Substance: OFATUMUMAB
     Indication: Relapsing-remitting multiple sclerosis
     Dosage: 20 MG, QMO (1 EVERY 1 MONTH)
     Route: 058

REACTIONS (5)
  - Musculoskeletal stiffness [Recovering/Resolving]
  - Electric shock sensation [Recovering/Resolving]
  - Mobility decreased [Recovering/Resolving]
  - Night sweats [Recovering/Resolving]
  - Seizure [Recovering/Resolving]
